FAERS Safety Report 19966769 (Version 5)
Quarter: 2022Q4

REPORT INFORMATION
  Report Type: Spontaneous
  Country: ES (occurrence: ES)
  Receive Date: 20211018
  Receipt Date: 20221004
  Transmission Date: 20230113
  Serious: Yes (Other)
  Sender: FDA-Public Use
  Company Number: ES-CELLTRION INC.-2021ES013938

PATIENT

DRUGS (1)
  1. INFLIXIMAB [Suspect]
     Active Substance: INFLIXIMAB
     Indication: Colitis ulcerative
     Dosage: 1250 MG, UNKNOWN, 6 WEEKS, MAINTENANCE TREATMENT

REACTIONS (3)
  - Mucocutaneous leishmaniasis [Recovered/Resolved]
  - Product use issue [Unknown]
  - Off label use [Unknown]
